FAERS Safety Report 20095054 (Version 1)
Quarter: 2021Q4

REPORT INFORMATION
  Report Type: Spontaneous
  Country: US (occurrence: US)
  Receive Date: 20211122
  Receipt Date: 20211122
  Transmission Date: 20220303
  Serious: No
  Sender: FDA-Public Use
  Company Number: US-TEVA-2021-US-1977083

PATIENT
  Age: 77 Year
  Sex: Female

DRUGS (1)
  1. KETOCONAZOLE [Suspect]
     Active Substance: KETOCONAZOLE
     Indication: Fungal infection
     Route: 065

REACTIONS (6)
  - Contraindicated product administered [Unknown]
  - Malaise [Unknown]
  - Sneezing [Unknown]
  - Nasal congestion [Unknown]
  - Sinus disorder [Unknown]
  - Tooth disorder [Unknown]
